FAERS Safety Report 23407476 (Version 1)
Quarter: 2024Q1

REPORT INFORMATION
  Report Type: Spontaneous
  Country: CA (occurrence: CA)
  Receive Date: 20240117
  Receipt Date: 20240117
  Transmission Date: 20240409
  Serious: Yes (Death, Other)
  Sender: FDA-Public Use
  Company Number: CA-DRL-USA-SPO/CAN/24/0000607

PATIENT
  Age: 80 Year
  Sex: Male
  Weight: 81 kg

DRUGS (3)
  1. AZACITIDINE [Suspect]
     Active Substance: AZACITIDINE
     Indication: Product used for unknown indication
     Route: 058
  2. VENCLEXTA [Suspect]
     Active Substance: VENETOCLAX
     Indication: Acute myeloid leukaemia
     Route: 048
  3. FILGRASTIM [Concomitant]
     Active Substance: FILGRASTIM
     Indication: Product used for unknown indication

REACTIONS (6)
  - Atelectasis [Fatal]
  - Respiratory tract congestion [Fatal]
  - Febrile neutropenia [Fatal]
  - Pleural effusion [Fatal]
  - Pneumonia [Fatal]
  - Pyrexia [Fatal]
